FAERS Safety Report 6166522-0 (Version None)
Quarter: 2009Q2

REPORT INFORMATION
  Report Type: 
  Country: None (occurrence: None)
  Receive Date: 20090424
  Receipt Date: 20090414
  Transmission Date: 20091009
  Serious: Yes (Hospitalization, Other)
  Sender: FDA-Public Use
  Company Number: US-ELI_LILLY_AND_COMPANY-US200904002912

PATIENT
  Sex: Male

DRUGS (2)
  1. FORTEO [Suspect]
     Dosage: UNK, UNK
     Dates: end: 20090101
  2. FORTEO [Suspect]
     Dates: start: 20090401

REACTIONS (4)
  - ASTHENIA [None]
  - HAEMORRHAGE [None]
  - MYOCARDIAL INFARCTION [None]
  - STENT PLACEMENT [None]
